FAERS Safety Report 23476748 (Version 1)
Quarter: 2024Q1

REPORT INFORMATION
  Report Type: Report from Study
  Country: US (occurrence: US)
  Receive Date: 20240204
  Receipt Date: 20240204
  Transmission Date: 20240410
  Serious: No
  Sender: FDA-Public Use
  Company Number: US-EXELIXIS-CABO-23064318

PATIENT
  Age: 68 Year
  Sex: Female

DRUGS (9)
  1. CABOMETYX [Suspect]
     Active Substance: CABOZANTINIB S-MALATE
     Indication: Renal cancer
     Dosage: 40 MG, QD
     Route: 048
     Dates: start: 20230524
  2. OPDIVO [Concomitant]
     Active Substance: NIVOLUMAB
  3. AMOXICILLIN [Concomitant]
     Active Substance: AMOXICILLIN
  4. HYDROMORPHONE [Concomitant]
     Active Substance: HYDROMORPHONE
  5. LOSARTAN [Concomitant]
     Active Substance: LOSARTAN
  6. MORPHINE SULFATE [Concomitant]
     Active Substance: MORPHINE SULFATE
  7. ONDANSETRON [Concomitant]
     Active Substance: ONDANSETRON
  8. PREGABALIN [Concomitant]
     Active Substance: PREGABALIN
  9. VITAMIN D [Concomitant]
     Active Substance: VITAMIN D NOS

REACTIONS (1)
  - Adverse event [Not Recovered/Not Resolved]

NARRATIVE: CASE EVENT DATE: 20230501
